FAERS Safety Report 9910754 (Version 2)
Quarter: 2014Q1

REPORT INFORMATION
  Report Type: Spontaneous
  Country: US (occurrence: US)
  Receive Date: 20140219
  Receipt Date: 20140219
  Transmission Date: 20141002
  Serious: No
  Sender: FDA-Public Use
  Company Number: US-GILEAD-2012-0053808

PATIENT
  Sex: Female
  Weight: 58.96 kg

DRUGS (10)
  1. LETAIRIS [Suspect]
     Indication: PULMONARY HYPERTENSION
     Dosage: 10 MG, UNK
     Route: 048
     Dates: start: 20120221
  2. NORVASC [Concomitant]
  3. OXYGEN [Concomitant]
  4. RHINOCORT AQUA [Concomitant]
  5. ACTONEL [Concomitant]
  6. ARAVA [Concomitant]
  7. MOBIC [Concomitant]
  8. PREDNISONE [Concomitant]
  9. LASIX                              /00032601/ [Concomitant]
  10. AMOXICILLIN AND CLAVULANATE POTASSIUM [Concomitant]

REACTIONS (2)
  - Fall [Unknown]
  - Infection [Unknown]
